FAERS Safety Report 11938236 (Version 1)
Quarter: 2016Q1

REPORT INFORMATION
  Report Type: Spontaneous
  Country: US (occurrence: None)
  Receive Date: 20160120
  Receipt Date: 20160120
  Transmission Date: 20160526
  Serious: No
  Sender: FDA-Public Use
  Company Number: None

PATIENT
  Age: 66 Year
  Sex: Female

DRUGS (1)
  1. STIVARGA [Suspect]
     Active Substance: REGORAFENIB
     Indication: RECTAL CANCER
     Dosage: QD FOR 21 DAYS ON, 7 DAYS OFF
     Route: 048
     Dates: start: 20151228

REACTIONS (1)
  - Blister [None]

NARRATIVE: CASE EVENT DATE: 20160118
